FAERS Safety Report 8428161-8 (Version None)
Quarter: 2012Q2

REPORT INFORMATION
  Report Type: 
  Country: None (occurrence: None)
  Receive Date: 20120611
  Receipt Date: 20120609
  Transmission Date: 20120825
  Serious: Yes (Other)
  Sender: FDA-Public Use
  Company Number: US-PFIZER INC-2012138939

PATIENT
  Sex: Female

DRUGS (1)
  1. GABAPENTIN [Suspect]
     Dosage: 300 MG, DAILY
     Dates: start: 20120604

REACTIONS (10)
  - BRONCHITIS CHRONIC [None]
  - ASTHMA [None]
  - IRRITABILITY [None]
  - ANXIETY [None]
  - CHRONIC OBSTRUCTIVE PULMONARY DISEASE [None]
  - DEPRESSION [None]
  - INSOMNIA [None]
  - AGITATION [None]
  - RESTLESSNESS [None]
  - PANIC ATTACK [None]
